FAERS Safety Report 11143183 (Version 1)
Quarter: 2015Q2

REPORT INFORMATION
  Report Type: Spontaneous
  Country: US (occurrence: US)
  Receive Date: 20150526
  Receipt Date: 20150526
  Transmission Date: 20150821
  Serious: No
  Sender: FDA-Public Use
  Company Number: US-NOVEN PHARMACEUTICALS, INC.-15US013579

PATIENT
  Sex: Female

DRUGS (2)
  1. MINIVELLE [Suspect]
     Active Substance: ESTRADIOL
     Indication: HOT FLUSH
     Dosage: 0.1 MG, TWICE WEEKLY
     Route: 062
     Dates: start: 201406, end: 201501
  2. MINIVELLE [Suspect]
     Active Substance: ESTRADIOL
     Indication: HORMONE REPLACEMENT THERAPY

REACTIONS (5)
  - Application site dryness [Not Recovered/Not Resolved]
  - Application site inflammation [Recovered/Resolved with Sequelae]
  - Application site pruritus [Recovered/Resolved with Sequelae]
  - Application site erythema [Recovered/Resolved with Sequelae]
  - Application site discolouration [Not Recovered/Not Resolved]

NARRATIVE: CASE EVENT DATE: 2014
